FAERS Safety Report 19168953 (Version 3)
Quarter: 2021Q2

REPORT INFORMATION
  Report Type: Spontaneous
  Country: US (occurrence: US)
  Receive Date: 20210422
  Receipt Date: 20210519
  Transmission Date: 20210717
  Serious: No
  Sender: FDA-Public Use
  Company Number: US-AIMMUNE THERAPEUTICS, INC.-2021AIMT00224

PATIENT

DRUGS (4)
  1. PALFORZIA [Suspect]
     Active Substance: PEANUT
     Dosage: 40 MG, ONCE, LAST DOSE OF PALFORZIA PRIOR TO ONSET OF EVENTS
     Route: 048
     Dates: start: 20210412, end: 20210412
  2. PALFORZIA [Suspect]
     Active Substance: PEANUT
     Dosage: 40 MG, ONCE, LAST DOSE OF PALFORZIA PRIOR TO ONSET OF EVENTS
     Route: 048
     Dates: start: 20210411, end: 20210411
  3. PALFORZIA [Suspect]
     Active Substance: PEANUT
     Dosage: 40 MG, ONCE, LAST DOSE OF PALFORZIA PRIOR TO ONSET OF EVENTS
     Route: 048
     Dates: start: 20210410, end: 20210410
  4. PALFORZIA [Suspect]
     Active Substance: PEANUT
     Indication: FOOD ALLERGY
     Dosage: 40 MG, 1X/DAY
     Route: 048
     Dates: start: 20210114, end: 20210422

REACTIONS (9)
  - Flushing [Unknown]
  - Abdominal discomfort [Recovering/Resolving]
  - Flushing [Recovering/Resolving]
  - Abdominal pain upper [Unknown]
  - Abdominal pain upper [Unknown]
  - Throat tightness [Unknown]
  - Throat tightness [Recovering/Resolving]
  - Nausea [Recovering/Resolving]
  - Hyperhidrosis [Unknown]

NARRATIVE: CASE EVENT DATE: 20210410
